FAERS Safety Report 11070412 (Version 1)
Quarter: 2015Q2

REPORT INFORMATION
  Report Type: Spontaneous
  Country: AR (occurrence: AR)
  Receive Date: 20150427
  Receipt Date: 20150427
  Transmission Date: 20150821
  Serious: Yes (Other)
  Sender: FDA-Public Use
  Company Number: PHHY2015AR048265

PATIENT
  Age: 63 Year
  Sex: Female

DRUGS (1)
  1. SANDOSTATIN LAR DEPOT [Suspect]
     Active Substance: OCTREOTIDE ACETATE
     Indication: NEUROENDOCRINE TUMOUR
     Dosage: EVERY 28 DAYS
     Route: 065
     Dates: start: 2011, end: 20140210

REACTIONS (8)
  - Breast cancer [Not Recovered/Not Resolved]
  - Uterine cancer [Not Recovered/Not Resolved]
  - Pancreatic carcinoma [Not Recovered/Not Resolved]
  - Mesenteric neoplasm [Not Recovered/Not Resolved]
  - Second primary malignancy [Not Recovered/Not Resolved]
  - General physical health deterioration [Unknown]
  - Hepatic cancer [Not Recovered/Not Resolved]
  - Colon cancer [Not Recovered/Not Resolved]

NARRATIVE: CASE EVENT DATE: 201503
